FAERS Safety Report 20901342 (Version 2)
Quarter: 2022Q2

REPORT INFORMATION
  Report Type: Spontaneous
  Country: JP (occurrence: JP)
  Receive Date: 20220601
  Receipt Date: 20220601
  Transmission Date: 20220721
  Serious: Yes (Other)
  Sender: FDA-Public Use
  Company Number: JP-PFIZER INC-202200757190

PATIENT
  Age: 10 Year
  Sex: Female

DRUGS (12)
  1. RITUXIMAB [Suspect]
     Active Substance: RITUXIMAB
     Indication: Nephrotic syndrome
     Dosage: 375 MG/M2, CYCLIC (EVERY WEEK FOR 4 WEEKS PER COURSE)
     Route: 042
  2. RITUXIMAB [Suspect]
     Active Substance: RITUXIMAB
     Dosage: UNK UNK, CYCLIC (TWO DOSES PER COURSE/AT INTERVALS OF ABOUT 1-2 YEARS)
     Route: 042
  3. RITUXIMAB [Suspect]
     Active Substance: RITUXIMAB
     Dosage: UNK UNK, CYCLIC (9TH ADMINISTRATION OF RTX)
     Route: 042
  4. RITUXIMAB [Suspect]
     Active Substance: RITUXIMAB
     Dosage: UNK UNK, CYCLIC (10TH ADMINISTRATION OF RTX)
     Route: 042
  5. RITUXIMAB [Suspect]
     Active Substance: RITUXIMAB
     Dosage: UNK UNK, CYCLIC (11TH ADMINISTRATION OF RTX)
     Route: 042
  6. PREDNISOLONE [Concomitant]
     Active Substance: PREDNISOLONE
     Indication: Nephrotic syndrome
     Dosage: 30 MG, ALTERNATE DAY (EVERY OTHER DAY)
     Route: 048
  7. PREDNISOLONE [Concomitant]
     Active Substance: PREDNISOLONE
     Dosage: 60 MG/M2, DAILY ( STRENGTHENED UP TO A DAILY DOSE)
  8. MIZORIBINE [Concomitant]
     Active Substance: MIZORIBINE
     Indication: Nephrotic syndrome
     Dosage: 1500 MG, DAILY
  9. MIZORIBINE [Concomitant]
     Active Substance: MIZORIBINE
     Dosage: 150 MG, DAILY
  10. MYCOPHENOLATE MOFETIL [Concomitant]
     Active Substance: MYCOPHENOLATE MOFETIL
     Indication: Nephrotic syndrome
     Dosage: 2000 MG, DAILY
  11. CYCLOSPORINE [Concomitant]
     Active Substance: CYCLOSPORINE
     Indication: Nephrotic syndrome
     Dosage: UNK
  12. AMPICILLIN SODIUM\SULBACTAM SODIUM [Concomitant]
     Active Substance: AMPICILLIN SODIUM\SULBACTAM SODIUM
     Dosage: 150 MG/KG, DAILY

REACTIONS (3)
  - Serum sickness [Recovering/Resolving]
  - Nephrotic syndrome [Unknown]
  - Drug ineffective [Unknown]
